FAERS Safety Report 9215797 (Version 2)
Quarter: 2013Q2

REPORT INFORMATION
  Report Type: Spontaneous
  Country: US (occurrence: US)
  Receive Date: 20130408
  Receipt Date: 20130517
  Transmission Date: 20140414
  Serious: No
  Sender: FDA-Public Use
  Company Number: US-009507513-1303USA010965

PATIENT
  Sex: Female

DRUGS (2)
  1. NUVARING [Suspect]
     Indication: CONTRACEPTION
     Dosage: 1 DF, UNK
     Route: 067
  2. NUVARING [Suspect]
     Dosage: 1 DF, UNK
     Route: 067

REACTIONS (1)
  - Metrorrhagia [Recovered/Resolved]
